FAERS Safety Report 5440999-8 (Version None)
Quarter: 2007Q3

REPORT INFORMATION
  Report Type: 
  Country: None (occurrence: None)
  Receive Date: 20070831
  Receipt Date: 20070820
  Transmission Date: 20080115
  Serious: Yes (Hospitalization, Other)
  Sender: FDA-Public Use
  Company Number: US-PFIZER INC-2007030401

PATIENT
  Sex: Female

DRUGS (1)
  1. BEXTRA [Suspect]
     Indication: PAIN
     Route: 048

REACTIONS (4)
  - ARRHYTHMIA [None]
  - CEREBROVASCULAR ACCIDENT [None]
  - ORGAN FAILURE [None]
  - STEVENS-JOHNSON SYNDROME [None]
